FAERS Safety Report 7998771-0 (Version None)
Quarter: 2011Q4

REPORT INFORMATION
  Report Type: 
  Country: None (occurrence: None)
  Receive Date: 20111221
  Receipt Date: 20111214
  Transmission Date: 20120403
  Serious: Yes (Hospitalization, Other)
  Sender: FDA-Public Use
  Company Number: US-ABBOTT-11P-163-0883709-00

PATIENT
  Sex: Male

DRUGS (5)
  1. BACLOFEN [Suspect]
     Indication: PRODUCT USED FOR UNKNOWN INDICATION
  2. VINCRISTINE SULFATE [Suspect]
     Indication: SPINAL OPERATION
  3. AMBIEN [Suspect]
     Indication: SPINAL OPERATION
  4. ANESTHETICS, GENERAL [Suspect]
     Indication: SPINAL OPERATION
  5. VICODIN [Suspect]
     Indication: SPINAL OPERATION

REACTIONS (4)
  - COMA [None]
  - DELUSIONAL DISORDER, UNSPECIFIED TYPE [None]
  - CONFUSIONAL STATE [None]
  - OVERDOSE [None]
